FAERS Safety Report 10055768 (Version 1)
Quarter: 2014Q2

REPORT INFORMATION
  Report Type: Spontaneous
  Country: FR (occurrence: FR)
  Receive Date: 20140403
  Receipt Date: 20140403
  Transmission Date: 20141212
  Serious: Yes (Hospitalization)
  Sender: FDA-Public Use
  Company Number: FR-AMGEN INC.-FRASP2014022685

PATIENT
  Age: 66 Year
  Sex: Female

DRUGS (6)
  1. VECTIBIX [Suspect]
     Indication: ADENOCARCINOMA OF COLON
     Dosage: UNK
     Route: 065
     Dates: start: 2013, end: 20140205
  2. OXALIPLATINE ACCORD [Suspect]
     Indication: ADENOCARCINOMA OF COLON
     Dosage: UNK
     Route: 042
     Dates: start: 2010, end: 20140220
  3. FLUOROURACILE [Concomitant]
     Dosage: UNK
  4. ERBITUX [Concomitant]
     Dosage: UNK
  5. FOLINIC ACID [Concomitant]
     Dosage: UNK
  6. IRINOTECAN [Concomitant]
     Dosage: UNK
     Dates: start: 20140311

REACTIONS (6)
  - Lip oedema [Recovered/Resolved]
  - Hypertension [Recovered/Resolved]
  - Tachycardia [Recovered/Resolved]
  - Hypersensitivity [Recovered/Resolved]
  - Pyrexia [Recovered/Resolved]
  - Chills [Recovered/Resolved]
